FAERS Safety Report 7684323-9 (Version None)
Quarter: 2011Q3

REPORT INFORMATION
  Report Type: 
  Country: None (occurrence: None)
  Receive Date: 20110815
  Receipt Date: 20110802
  Transmission Date: 20111222
  Serious: No
  Sender: FDA-Public Use
  Company Number: US-B.I. PHARMACEUTICALS,INC./RIDGEFIELD-2011-BP-19003BP

PATIENT
  Sex: Female

DRUGS (13)
  1. PRADAXA [Suspect]
     Indication: ATRIAL FIBRILLATION
     Dosage: 300 MG
     Route: 048
     Dates: start: 20110701
  2. CARDIZEM [Concomitant]
     Indication: ATRIAL FIBRILLATION
     Dosage: 360 MG
     Route: 048
     Dates: start: 20110701
  3. DIGOXIN [Concomitant]
     Indication: ATRIAL FIBRILLATION
     Dosage: 0.25 MG
     Route: 048
     Dates: start: 20060101
  4. FISH OIL [Concomitant]
     Indication: SUPPLEMENTATION THERAPY
     Dosage: 4400 MG
     Route: 048
  5. LANTUS [Concomitant]
     Indication: DIABETES MELLITUS
     Dosage: 55 U
     Route: 058
     Dates: start: 20060101
  6. CLONAZEPAM [Concomitant]
     Indication: INSOMNIA
     Dosage: 1 MCG
     Route: 048
     Dates: start: 20060101
  7. NASONEX [Concomitant]
     Indication: SEASONAL ALLERGY
     Route: 045
     Dates: start: 20060101
  8. CALCIUM + VIT D [Concomitant]
     Indication: SUPPLEMENTATION THERAPY
     Route: 048
     Dates: start: 20060101
  9. SIMVASTATIN [Concomitant]
     Indication: BLOOD CHOLESTEROL INCREASED
     Dosage: 20 MG
     Route: 048
     Dates: start: 20060101
  10. ALREX [Concomitant]
     Indication: DRY EYE
     Dates: start: 20060101
  11. GLIPIZIDE [Concomitant]
     Indication: DIABETES MELLITUS
     Dosage: 20 MG
     Route: 048
     Dates: start: 20060101
  12. LEVOTHYROXINE SODIUM [Concomitant]
     Indication: HYPOTHYROIDISM
     Dosage: 75 MCG
     Route: 048
     Dates: start: 20060101
  13. AREDS FORMULA [Concomitant]
     Indication: DRY EYE
     Route: 048
     Dates: start: 20070101

REACTIONS (5)
  - ABDOMINAL DISTENSION [None]
  - NAUSEA [None]
  - ABDOMINAL PAIN UPPER [None]
  - DYSPEPSIA [None]
  - DIARRHOEA [None]
